FAERS Safety Report 7029319-5 (Version None)
Quarter: 2010Q4

REPORT INFORMATION
  Report Type: 
  Country: None (occurrence: None)
  Receive Date: 20101005
  Receipt Date: 20100922
  Transmission Date: 20110411
  Serious: Yes (Death)
  Sender: FDA-Public Use
  Company Number: PHHY2010MX27037

PATIENT
  Sex: Female

DRUGS (1)
  1. ZOMETA [Suspect]
     Indication: NEOPLASM MALIGNANT
     Dosage: 4 MG, UNK
     Route: 042
     Dates: start: 20090401, end: 20090701

REACTIONS (3)
  - METASTASES TO BONE [None]
  - NEOPLASM MALIGNANT [None]
  - RESPIRATORY ARREST [None]
